FAERS Safety Report 25215909 (Version 2)
Quarter: 2025Q2

REPORT INFORMATION
  Report Type: Spontaneous
  Country: TR (occurrence: TR)
  Receive Date: 20250418
  Receipt Date: 20250509
  Transmission Date: 20250716
  Serious: Yes (Other)
  Sender: PFIZER
  Company Number: TR-PFIZER INC-PV202500044305

PATIENT
  Age: 18 Year
  Sex: Female

DRUGS (4)
  1. METHOTREXATE SODIUM [Suspect]
     Active Substance: METHOTREXATE SODIUM
     Indication: Takayasu^s arteritis
     Dosage: 15 MG, WEEKLY
  2. ADALIMUMAB [Concomitant]
     Active Substance: ADALIMUMAB
     Indication: Colitis ulcerative
  3. ADALIMUMAB [Concomitant]
     Active Substance: ADALIMUMAB
     Indication: Takayasu^s arteritis
     Dosage: 40 MG, WEEKLY
  4. CYCLOPHOSPHAMIDE [Concomitant]
     Active Substance: CYCLOPHOSPHAMIDE
     Indication: Takayasu^s arteritis

REACTIONS (4)
  - Takayasu^s arteritis [Unknown]
  - Haematochezia [Unknown]
  - Off label use [Unknown]
  - Drug effective for unapproved indication [Unknown]
